FAERS Safety Report 21563353 (Version 6)
Quarter: 2025Q1

REPORT INFORMATION
  Report Type: Spontaneous
  Country: US (occurrence: US)
  Receive Date: 20221108
  Receipt Date: 20250120
  Transmission Date: 20250408
  Serious: No
  Sender: GLAXOSMITHKLINE
  Company Number: US-GSKCCFUS-Case-01544943_AE-87441

PATIENT
  Sex: Female

DRUGS (1)
  1. BENLYSTA [Suspect]
     Active Substance: BELIMUMAB
     Indication: Systemic lupus erythematosus
     Route: 058

REACTIONS (11)
  - Exposure via skin contact [Unknown]
  - Lymphadenopathy [Unknown]
  - Swelling [Unknown]
  - Chest discomfort [Unknown]
  - Muscle tightness [Unknown]
  - Pain in extremity [Unknown]
  - Pain of skin [Unknown]
  - Insomnia [Unknown]
  - Accidental exposure to product [Unknown]
  - Product dose omission issue [Unknown]
  - Product complaint [Unknown]
